FAERS Safety Report 7731016-5 (Version None)
Quarter: 2011Q3

REPORT INFORMATION
  Report Type: 
  Country: None (occurrence: None)
  Receive Date: 20110906
  Receipt Date: 20110823
  Transmission Date: 20111222
  Serious: Yes (Other)
  Sender: FDA-Public Use
  Company Number: BR-US-EMD SERONO, INC.-7000132

PATIENT
  Sex: Female

DRUGS (5)
  1. REBIF [Suspect]
     Dates: start: 20070906, end: 20110809
  2. REBIF [Suspect]
     Indication: RELAPSING-REMITTING MULTIPLE SCLEROSIS
     Dates: start: 20070101, end: 20070906
  3. OTHERS [Concomitant]
     Dates: start: 20070101
  4. AMTRIPTILINE [Concomitant]
  5. CAPTOPRIL [Concomitant]

REACTIONS (3)
  - HEADACHE [None]
  - DRUG INTERACTION [None]
  - THYROID CANCER [None]
